FAERS Safety Report 7354609-6 (Version None)
Quarter: 2011Q1

REPORT INFORMATION
  Report Type: 
  Country: None (occurrence: None)
  Receive Date: 20110316
  Receipt Date: 20110310
  Transmission Date: 20110831
  Serious: No
  Sender: FDA-Public Use
  Company Number: US-PFIZER INC-2011025289

PATIENT
  Sex: Female
  Weight: 59 kg

DRUGS (4)
  1. VERAPAMIL [Concomitant]
     Dosage: UNK
  2. XALATAN [Suspect]
     Dosage: ONE GTT, DAILY
     Route: 047
     Dates: start: 20110101
  3. XALATAN [Suspect]
     Indication: GLAUCOMA
     Dosage: ONE DROP, 1X/DAY, IN EACH EYE
     Route: 047
     Dates: start: 20110129
  4. PEPSIN [Concomitant]
     Dosage: UNK

REACTIONS (6)
  - NAUSEA [None]
  - DRY EYE [None]
  - EYE IRRITATION [None]
  - EYE PRURITUS [None]
  - DYSGEUSIA [None]
  - HEADACHE [None]
